FAERS Safety Report 5123272-7 (Version None)
Quarter: 2006Q4

REPORT INFORMATION
  Report Type: 
  Country: None (occurrence: None)
  Receive Date: 20061009
  Receipt Date: 20060615
  Transmission Date: 20070319
  Serious: Yes (Disabling)
  Sender: FDA-Public Use
  Company Number: FR-GLAXOSMITHKLINE-B0437037A

PATIENT
  Age: 55 Year
  Sex: Male
  Weight: 82 kg

DRUGS (4)
  1. AVANDAMET [Suspect]
     Route: 048
  2. COAPROVEL [Concomitant]
     Dosage: 300MG PER DAY
     Route: 048
  3. METFORMIN [Concomitant]
     Dosage: 1000MG PER DAY
     Route: 048
  4. ZANIDIP [Concomitant]
     Dosage: 10MG PER DAY
     Route: 048

REACTIONS (2)
  - MACULAR OEDEMA [None]
  - VISUAL ACUITY REDUCED [None]
